FAERS Safety Report 4745104-9 (Version None)
Quarter: 2005Q3

REPORT INFORMATION
  Report Type: 
  Country: None (occurrence: None)
  Receive Date: 20050812
  Receipt Date: 20050812
  Transmission Date: 20060218
  Serious: Yes (Life-Threatening, Hospitalization)
  Sender: FDA-Public Use
  Company Number: None

PATIENT
  Age: 70 Year
  Sex: Female
  Weight: 85.2762 kg

DRUGS (8)
  1. WARFARIN 5 MG DAILY X2, THEN 7.5 MG X 1 [Suspect]
     Indication: AORTIC VALVE REPLACEMENT
     Dosage: 5 MG DAILY X2, THEN 7.5 MG X 1
     Dates: start: 20050621, end: 20050623
  2. WARFARIN 5 MG DAILY X2, THEN 7.5 MG X 1 [Suspect]
     Indication: ATRIAL FIBRILLATION
     Dosage: 5 MG DAILY X2, THEN 7.5 MG X 1
     Dates: start: 20050621, end: 20050623
  3. HEPARIN SODIUM 25,000 UNITS IN DEXTROSE 5% [Suspect]
     Indication: AORTIC VALVE REPLACEMENT
     Dosage: PER PROCOTOL
     Dates: start: 20050621, end: 20050624
  4. HEPARIN SODIUM 25,000 UNITS IN DEXTROSE 5% [Suspect]
     Indication: ATRIAL FIBRILLATION
     Dosage: PER PROCOTOL
     Dates: start: 20050621, end: 20050624
  5. ZOLOFT [Concomitant]
  6. METOPROLOL [Concomitant]
  7. DILTIAZEM [Concomitant]
  8. LISPRO INSULIN [Concomitant]

REACTIONS (1)
  - RECTAL HAEMORRHAGE [None]
